FAERS Safety Report 8223877 (Version 2)
Quarter: 2012Q4

REPORT INFORMATION
  Report Type: 
  Country: US (occurrence: US)
  Receive Date: 20111102
  Receipt Date: 20121023
  Transmission Date: 20130627
  Serious: Yes (Hospitalization)
  Sender: FDA-Public Use
  Company Number: US-AMGEN-USASP2011035598

PATIENT
  Age: 68 Year
  Sex: Female

DRUGS (1)
  1. ENBREL [Suspect]
     Indication: RHEUMATOID ARTHRITIS
     Dosage: 50 mg, qwk
     Dates: start: 20000301

REACTIONS (4)
  - Sinusitis [Recovered/Resolved]
  - Sinus polyp [Recovered/Resolved]
  - Rheumatoid arthritis [Recovered/Resolved]
  - Osteoarthritis [Not Recovered/Not Resolved]
